FAERS Safety Report 4814856-1 (Version None)
Quarter: 2005Q4

REPORT INFORMATION
  Report Type: 
  Country: None (occurrence: None)
  Receive Date: 20051027
  Receipt Date: 20051027
  Transmission Date: 20060501
  Serious: Yes (Life-Threatening, Hospitalization)
  Sender: FDA-Public Use
  Company Number: None

PATIENT
  Age: 57 Year
  Sex: Male
  Weight: 58.3 kg

DRUGS (2)
  1. AMIKACIN [Suspect]
  2. LEG BAG COMBINATION PACK H#982 [Suspect]

REACTIONS (1)
  - NEUROMUSCULAR BLOCKADE [None]
